FAERS Safety Report 25555734 (Version 1)
Quarter: 2025Q3

REPORT INFORMATION
  Report Type: Spontaneous
  Country: TN (occurrence: TN)
  Receive Date: 20250715
  Receipt Date: 20250715
  Transmission Date: 20251021
  Serious: Yes (Other)
  Sender: PFIZER
  Company Number: TN-PFIZER INC-PV202500082733

PATIENT
  Age: 57 Year
  Sex: Female

DRUGS (2)
  1. PALBOCICLIB [Suspect]
     Active Substance: PALBOCICLIB
  2. ARIMIDEX [Suspect]
     Active Substance: ANASTROZOLE

REACTIONS (6)
  - Hepatic cytolysis [Recovering/Resolving]
  - Asthenia [Recovering/Resolving]
  - Nausea [Recovering/Resolving]
  - Abdominal pain upper [Recovering/Resolving]
  - Gamma-glutamyltransferase increased [Recovering/Resolving]
  - Blood alkaline phosphatase increased [Recovering/Resolving]
